FAERS Safety Report 9210502 (Version 1)
Quarter: 2013Q2

REPORT INFORMATION
  Report Type: Spontaneous
  Country: BG (occurrence: BG)
  Receive Date: 20130404
  Receipt Date: 20130404
  Transmission Date: 20140414
  Serious: Yes (Life-Threatening, Other)
  Sender: FDA-Public Use
  Company Number: BG-TEVA-394613ISR

PATIENT
  Age: 51 Year
  Sex: Male

DRUGS (1)
  1. LEVOFLOXACIN [Suspect]
     Indication: RESPIRATORY TRACT INFECTION
     Dosage: 1 MILLIGRAM DAILY;
     Route: 048
     Dates: start: 20130222, end: 20130228

REACTIONS (9)
  - Bronchospasm [Unknown]
  - Asphyxia [Unknown]
  - Chest discomfort [Unknown]
  - Tension [Unknown]
  - Food interaction [Unknown]
  - Hypersensitivity [Unknown]
  - Erythema [Unknown]
  - Genital burning sensation [Unknown]
  - Penile erythema [None]
